FAERS Safety Report 7111623-3 (Version None)
Quarter: 2010Q4

REPORT INFORMATION
  Report Type: 
  Country: None (occurrence: None)
  Receive Date: 20101118
  Receipt Date: 20101108
  Transmission Date: 20110411
  Serious: Yes (Disabling)
  Sender: FDA-Public Use
  Company Number: US-PURDUE-USA-2010-0053568

PATIENT
  Sex: Male
  Weight: 89.342 kg

DRUGS (6)
  1. MS CONTIN [Suspect]
     Indication: PAIN
     Dosage: 30 MG, Q8H
  2. FENTANYL CITRATE [Suspect]
     Indication: CANCER PAIN
     Dosage: 200 MCG, SEE TEXT
     Dates: start: 20100806
  3. PERCOCET [Concomitant]
     Indication: PAIN
     Dosage: UNK
  4. JANUVIA [Concomitant]
     Indication: DIABETES MELLITUS
     Dosage: 100 MG, UNK
  5. NEXIUM [Concomitant]
     Indication: REFLUX OESOPHAGITIS
     Dosage: 80 MG, UNK
  6. ATENOLOL [Concomitant]
     Indication: HYPERTENSION
     Dosage: UNK

REACTIONS (1)
  - WALKING DISABILITY [None]
